FAERS Safety Report 6554152-8 (Version None)
Quarter: 2010Q1

REPORT INFORMATION
  Report Type: 
  Country: None (occurrence: None)
  Receive Date: 20100127
  Receipt Date: 20100120
  Transmission Date: 20100710
  Serious: Yes (Other)
  Sender: FDA-Public Use
  Company Number: GB-TEVA-183469ISR

PATIENT
  Age: 36 Year
  Sex: Female
  Weight: 65 kg

DRUGS (1)
  1. METFORMIN [Suspect]
     Indication: GESTATIONAL DIABETES
     Route: 064
     Dates: start: 20081008, end: 20081024

REACTIONS (1)
  - INTRA-UTERINE DEATH [None]
